FAERS Safety Report 16767699 (Version 2)
Quarter: 2019Q3

REPORT INFORMATION
  Report Type: Spontaneous
  Country: CN (occurrence: CN)
  Receive Date: 20190903
  Receipt Date: 20190906
  Transmission Date: 20191005
  Serious: Yes (Other)
  Sender: FDA-Public Use
  Company Number: CN-PFIZER INC-2019378317

PATIENT
  Age: 66 Year
  Sex: Female

DRUGS (2)
  1. LINEZOLID. [Suspect]
     Active Substance: LINEZOLID
     Indication: PNEUMONIA
     Dosage: 600 MG, 1X/DAY
     Route: 041
     Dates: start: 20190822, end: 20190823
  2. MEROPENEM. [Concomitant]
     Active Substance: MEROPENEM
     Dosage: UNK
     Dates: start: 20190822

REACTIONS (10)
  - Fibrin D dimer increased [Unknown]
  - Pruritus [Recovering/Resolving]
  - Fibrin degradation products increased [Unknown]
  - Interleukin level increased [Unknown]
  - Haemoglobin decreased [Unknown]
  - White blood cell count increased [Unknown]
  - Petechiae [Recovering/Resolving]
  - C-reactive protein increased [Unknown]
  - Procalcitonin increased [Unknown]
  - Blood fibrinogen increased [Unknown]

NARRATIVE: CASE EVENT DATE: 20190823
